FAERS Safety Report 4747822-5 (Version None)
Quarter: 2005Q3

REPORT INFORMATION
  Report Type: 
  Country: None (occurrence: None)
  Receive Date: 20050816
  Receipt Date: 20050726
  Transmission Date: 20060218
  Serious: No
  Sender: FDA-Public Use
  Company Number: 02100-USA-03-0510

PATIENT
  Age: 84 Year
  Sex: Male

DRUGS (9)
  1. PLETAL [Suspect]
     Indication: INTERMITTENT CLAUDICATION
     Dosage: 100 DF BID ORAL
     Route: 048
     Dates: start: 20030422, end: 20030806
  2. PLETAL [Suspect]
     Indication: INTERMITTENT CLAUDICATION
     Dosage: 50 DF BID ORAL
     Route: 048
     Dates: start: 20030422, end: 20030806
  3. CARDURA [Concomitant]
  4. ISOSORBIDE [Concomitant]
  5. ATENOLOL [Concomitant]
  6. SIMVASTATIN [Concomitant]
  7. ASPIRIN [Concomitant]
  8. EPOGEN [Concomitant]
  9. IRON [Concomitant]

REACTIONS (5)
  - ACTINIC KERATOSIS [None]
  - DIARRHOEA [None]
  - FOLLICULITIS [None]
  - OCCULT BLOOD POSITIVE [None]
  - RASH GENERALISED [None]
